FAERS Safety Report 22400906 (Version 1)
Quarter: 2023Q2

REPORT INFORMATION
  Report Type: Spontaneous
  Country: GB (occurrence: GB)
  Receive Date: 20230602
  Receipt Date: 20230602
  Transmission Date: 20230722
  Serious: Yes (Hospitalization)
  Sender: FDA-Public Use
  Company Number: GB-VERTEX PHARMACEUTICALS-2023-007862

PATIENT
  Sex: Female

DRUGS (2)
  1. ELEXACAFTOR\IVACAFTOR\TEZACAFTOR [Suspect]
     Active Substance: ELEXACAFTOR\IVACAFTOR\TEZACAFTOR
     Indication: Cystic fibrosis
     Dosage: (75MG IVA/50MG TEZA/100MG ELEXA) TWICE A DAY
     Route: 048
     Dates: start: 2021
  2. KALYDECO [Suspect]
     Active Substance: IVACAFTOR
     Indication: Cystic fibrosis
     Dosage: UNKNOWN DOSE
     Route: 048
     Dates: start: 2021

REACTIONS (3)
  - Infective pulmonary exacerbation of cystic fibrosis [Recovering/Resolving]
  - Viral infection [Recovering/Resolving]
  - Pharyngitis [Recovering/Resolving]
